FAERS Safety Report 18728479 (Version 1)
Quarter: 2021Q1

REPORT INFORMATION
  Report Type: Spontaneous
  Country: US (occurrence: US)
  Receive Date: 20210112
  Receipt Date: 20210112
  Transmission Date: 20210419
  Serious: Yes (Life-Threatening, Hospitalization, Other)
  Sender: FDA-Public Use
  Company Number: US-HIKMA PHARMACEUTICALS USA INC.-US-H14001-21-53271

PATIENT
  Age: 59 Year
  Sex: Female

DRUGS (3)
  1. OLARATUMAB [Suspect]
     Active Substance: OLARATUMAB
     Indication: ENDOMETRIAL STROMAL SARCOMA
     Dosage: CYCLICAL
     Route: 065
     Dates: start: 201711
  2. DOXORUBICIN [Suspect]
     Active Substance: DOXORUBICIN
     Indication: ENDOMETRIAL STROMAL SARCOMA
     Dosage: CYCLICAL
     Route: 065
     Dates: start: 201711
  3. CABOZANTINIB [Concomitant]
     Active Substance: CABOZANTINIB
     Indication: PRODUCT USED FOR UNKNOWN INDICATION
     Dosage: REDUCED DOSE ()
     Route: 065

REACTIONS (1)
  - Pneumothorax [Unknown]

NARRATIVE: CASE EVENT DATE: 201801
